FAERS Safety Report 7170691-3 (Version None)
Quarter: 2010Q4

REPORT INFORMATION
  Report Type: 
  Country: None (occurrence: None)
  Receive Date: 20101206
  Receipt Date: 20101122
  Transmission Date: 20110411
  Serious: Yes (Other)
  Sender: FDA-Public Use
  Company Number: 2010MA004768

PATIENT
  Sex: Male

DRUGS (1)
  1. METOCLOPRAMIDE [Suspect]
     Dosage: PO
     Route: 048
     Dates: start: 20010301, end: 20050101

REACTIONS (10)
  - COGNITIVE DISORDER [None]
  - DISTURBANCE IN ATTENTION [None]
  - ECONOMIC PROBLEM [None]
  - EMOTIONAL DISORDER [None]
  - GRIMACING [None]
  - INJURY [None]
  - NEUROLEPTIC MALIGNANT SYNDROME [None]
  - SPEECH DISORDER [None]
  - STARING [None]
  - TARDIVE DYSKINESIA [None]
